FAERS Safety Report 11749631 (Version 6)
Quarter: 2017Q2

REPORT INFORMATION
  Report Type: Report from Study
  Country: CA (occurrence: CA)
  Receive Date: 20151118
  Receipt Date: 20170421
  Transmission Date: 20170829
  Serious: Yes (Other)
  Sender: FDA-Public Use
  Company Number: CA-ROCHE-1610731

PATIENT
  Sex: Female
  Weight: 70.5 kg

DRUGS (7)
  1. ESBRIET [Suspect]
     Active Substance: PIRFENIDONE
     Indication: IDIOPATHIC PULMONARY FIBROSIS
     Route: 048
     Dates: start: 20150513
  2. METONIA [Concomitant]
     Active Substance: METOCLOPRAMIDE
  3. PANTOLOC [Concomitant]
     Active Substance: PANTOPRAZOLE SODIUM
  4. ESBRIET [Suspect]
     Active Substance: PIRFENIDONE
     Route: 048
     Dates: start: 20150520
  5. ESBRIET [Suspect]
     Active Substance: PIRFENIDONE
     Route: 048
     Dates: start: 20150527
  6. ESBRIET [Suspect]
     Active Substance: PIRFENIDONE
     Route: 048
     Dates: start: 2015
  7. ESBRIET [Suspect]
     Active Substance: PIRFENIDONE
     Dosage: 801 MG-534 MG-534 MG.
     Route: 048
     Dates: start: 20150718

REACTIONS (11)
  - Pulmonary function test abnormal [Unknown]
  - Tremor [Not Recovered/Not Resolved]
  - Constipation [Unknown]
  - Dyspnoea [Unknown]
  - Oxygen saturation decreased [Unknown]
  - Cataract [Unknown]
  - Aspartate aminotransferase increased [Unknown]
  - Resting tremor [Unknown]
  - Rales [Unknown]
  - Fatigue [Recovering/Resolving]
  - Alanine aminotransferase increased [Unknown]

NARRATIVE: CASE EVENT DATE: 2015
